FAERS Safety Report 16151812 (Version 2)
Quarter: 2019Q4

REPORT INFORMATION
  Report Type: Spontaneous
  Country: US (occurrence: US)
  Receive Date: 20190403
  Receipt Date: 20191014
  Transmission Date: 20200122
  Serious: Yes (Hospitalization)
  Sender: FDA-Public Use
  Company Number: US-EMD SERONO-9082158

PATIENT
  Age: 39 Year
  Sex: Female

DRUGS (2)
  1. REBIF [Suspect]
     Active Substance: INTERFERON BETA-1A
     Route: 058
     Dates: start: 20120312
  2. REBIF [Suspect]
     Active Substance: INTERFERON BETA-1A
     Indication: MULTIPLE SCLEROSIS
     Route: 058
     Dates: start: 2007

REACTIONS (5)
  - Multiple sclerosis relapse [Unknown]
  - Blood pressure increased [Not Recovered/Not Resolved]
  - Anxiety [Unknown]
  - Contusion [Unknown]
  - Depression [Unknown]

NARRATIVE: CASE EVENT DATE: 201903
